FAERS Safety Report 9614341 (Version 2)
Quarter: 2013Q4

REPORT INFORMATION
  Report Type: Other
  Country: GB (occurrence: GB)
  Receive Date: 20131011
  Receipt Date: 20131028
  Transmission Date: 20140711
  Serious: Yes (Hospitalization, Other)
  Sender: FDA-Public Use
  Company Number: GB-SUN PHARMACEUTICAL INDUSTRIES LTD-2013SUN04806

PATIENT
  Age: 61 Year
  Sex: Male
  Weight: 91.2 kg

DRUGS (7)
  1. GEMCITABINE [Suspect]
     Indication: PANCREATIC CARCINOMA
     Dosage: 2128 MG, UNK
     Route: 042
     Dates: start: 20130830, end: 20130906
  2. ALLOPURINOL [Concomitant]
     Indication: GOUT
  3. AMITRIPTYLINE [Concomitant]
     Indication: NEURALGIA
  4. CREON [Concomitant]
     Indication: PANCREATIC INSUFFICIENCY
  5. INDOMETHACIN [Concomitant]
     Indication: PAIN
  6. LANSOPRAZOLE [Concomitant]
     Indication: DYSPEPSIA
  7. PARACETAMOL [Concomitant]
     Indication: PAIN

REACTIONS (4)
  - Biliary dilatation [Unknown]
  - Blood bilirubin increased [Unknown]
  - Liver function test abnormal [Recovering/Resolving]
  - Malaise [Recovered/Resolved]
